FAERS Safety Report 7844565-6 (Version None)
Quarter: 2011Q4

REPORT INFORMATION
  Report Type: 
  Country: None (occurrence: None)
  Receive Date: 20111025
  Receipt Date: 20111013
  Transmission Date: 20120403
  Serious: Yes (Hospitalization)
  Sender: FDA-Public Use
  Company Number: US-BAYER-2011-007237

PATIENT
  Age: 36 Year
  Sex: Female
  Weight: 100 kg

DRUGS (13)
  1. AMOXICILLIN [Concomitant]
     Dosage: 500 MG, UNK
  2. DIAMOX SRC [Concomitant]
     Dosage: 10 MG, QD
     Route: 048
  3. BENADRYL [Concomitant]
     Indication: RASH
     Dosage: 100 MG, UNK
  4. FLUOXETINE HCL [Concomitant]
     Dosage: 20 MG, UNK
  5. DROSPIRENONE AND ETHINYL ESTRADIOL [Suspect]
     Indication: PRODUCT USED FOR UNKNOWN INDICATION
     Dosage: UNK
     Route: 048
     Dates: start: 20080301, end: 20081101
  6. PRISTIQ [Concomitant]
     Indication: DEPRESSION
     Dosage: UNK
     Dates: start: 20080101
  7. METFORMIN HCL [Concomitant]
     Indication: POLYCYSTIC OVARIES
     Dosage: UNK
     Dates: start: 20090101
  8. TRIAMTERENE [Concomitant]
     Indication: MENIERE'S DISEASE
     Dosage: 37.5 MG/D, UNK
     Dates: start: 20070101
  9. TOPAMAX [Concomitant]
  10. VENLAFAXINE [Concomitant]
     Dosage: 37.5 MG, UNK
  11. YASMIN [Suspect]
     Indication: PRODUCT USED FOR UNKNOWN INDICATION
     Dosage: UNK
     Route: 048
     Dates: start: 20080319, end: 20080730
  12. PRISTIQ [Concomitant]
     Indication: ANXIETY
  13. EFFEXOR [Concomitant]
     Dosage: 75 MG, UNK

REACTIONS (4)
  - DYSPNOEA [None]
  - PAIN [None]
  - PULMONARY EMBOLISM [None]
  - EMOTIONAL DISTRESS [None]
